FAERS Safety Report 5661252-3 (Version None)
Quarter: 2008Q1

REPORT INFORMATION
  Report Type: 
  Country: None (occurrence: None)
  Receive Date: 20080312
  Receipt Date: 20080229
  Transmission Date: 20080703
  Serious: Yes (Life-Threatening, Hospitalization)
  Sender: FDA-Public Use
  Company Number: B0506864A

PATIENT
  Age: 21 Year
  Sex: Female

DRUGS (4)
  1. LAMICTAL [Suspect]
     Indication: EPILEPSY
     Route: 048
     Dates: start: 20080114, end: 20080129
  2. DEPAKENE [Suspect]
     Indication: EPILEPSY
     Dosage: 1000MG TWICE PER DAY
     Route: 048
     Dates: start: 19950101, end: 20080130
  3. ATARAX [Concomitant]
     Indication: DRUG USE FOR UNKNOWN INDICATION
     Route: 048
  4. ORAL CONTRACEPTION [Concomitant]
     Indication: CONTRACEPTION
     Route: 048

REACTIONS (8)
  - DERMATITIS BULLOUS [None]
  - FACE OEDEMA [None]
  - MUCOUS MEMBRANE DISORDER [None]
  - PRURITUS [None]
  - PYREXIA [None]
  - RASH MACULO-PAPULAR [None]
  - SKIN DISORDER [None]
  - TOXIC EPIDERMAL NECROLYSIS [None]
